FAERS Safety Report 24234746 (Version 2)
Quarter: 2024Q3

REPORT INFORMATION
  Report Type: Spontaneous
  Country: US (occurrence: US)
  Receive Date: 20240821
  Receipt Date: 20240830
  Transmission Date: 20241017
  Serious: No
  Sender: DR REDDYS
  Company Number: None

PATIENT
  Age: 32 Year
  Sex: Male

DRUGS (7)
  1. LAMOTRIGINE [Suspect]
     Active Substance: LAMOTRIGINE
     Indication: Substance use disorder
     Dosage: 13-DEC-2023
     Route: 048
     Dates: end: 20231227
  2. LAMOTRIGINE [Suspect]
     Active Substance: LAMOTRIGINE
     Indication: Drug dependence
     Route: 048
     Dates: start: 20240112
  3. LAMOTRIGINE [Suspect]
     Active Substance: LAMOTRIGINE
     Indication: Depressive symptom
     Route: 048
     Dates: start: 20231228, end: 20240111
  4. NALTREXONE [Suspect]
     Active Substance: NALTREXONE
     Indication: Substance use disorder
     Dosage: INCREASED?16-DEC-2023
  5. NALTREXONE [Suspect]
     Active Substance: NALTREXONE
     Indication: Drug dependence
     Dosage: 25MG NIGHTLY FOR THREE NIGHTS
     Dates: start: 20231213, end: 20231215
  6. NALTREXONE [Suspect]
     Active Substance: NALTREXONE
     Indication: Depressive symptom
  7. VORTIOXETINE [Concomitant]
     Active Substance: VORTIOXETINE HYDROBROMIDE
     Indication: Major depression
     Dates: start: 202305

REACTIONS (2)
  - Nausea [Unknown]
  - Off label use [Unknown]

NARRATIVE: CASE EVENT DATE: 20231201
